FAERS Safety Report 23221727 (Version 1)
Quarter: 2023Q4

REPORT INFORMATION
  Report Type: Spontaneous
  Country: GB (occurrence: None)
  Receive Date: 20231123
  Receipt Date: 20231123
  Transmission Date: 20240110
  Serious: Yes (Other)
  Sender: FDA-Public Use
  Company Number: 2023A260364

PATIENT
  Age: 72 Year
  Sex: Male
  Weight: 98 kg

DRUGS (6)
  1. DAPAGLIFLOZIN [Suspect]
     Active Substance: DAPAGLIFLOZIN
     Route: 048
     Dates: start: 20231012
  2. AMLODIPINE [Concomitant]
     Active Substance: AMLODIPINE BESYLATE
     Dosage: 1
     Dates: start: 20160905
  3. EZETIMIBE [Concomitant]
     Active Substance: EZETIMIBE
     Dosage: 1
     Dates: start: 20231013
  4. GLICLAZIDE [Concomitant]
     Active Substance: GLICLAZIDE
     Dosage: 1
     Dates: start: 20210604
  5. LISINOPRIL [Concomitant]
     Active Substance: LISINOPRIL
     Dosage: 1
     Dates: start: 20220704
  6. METFORMIN [Concomitant]
     Active Substance: METFORMIN HYDROCHLORIDE
     Dosage: 2
     Dates: start: 20181129

REACTIONS (3)
  - Dizziness [Recovered/Resolved]
  - Lethargy [Recovered/Resolved]
  - Urinary incontinence [Recovered/Resolved]
